FAERS Safety Report 9969854 (Version 1)
Quarter: 2014Q1

REPORT INFORMATION
  Report Type: Spontaneous
  Country: US (occurrence: None)
  Receive Date: 20140305
  Receipt Date: 20140305
  Transmission Date: 20141002
  Serious: Yes (Other)
  Sender: FDA-Public Use
  Company Number: None

PATIENT
  Age: 74 Year
  Sex: Male
  Weight: 108 kg

DRUGS (1)
  1. PHYTONADIONE [Suspect]
     Indication: COAGULOPATHY
     Dosage: 5MG ONCE INTRAVENOUS
     Route: 042
     Dates: start: 20140210, end: 20140211

REACTIONS (2)
  - Back pain [None]
  - Infusion related reaction [None]
